FAERS Safety Report 4614894-8 (Version None)
Quarter: 2005Q1

REPORT INFORMATION
  Report Type: 
  Country: None (occurrence: None)
  Receive Date: 20050318
  Receipt Date: 20050318
  Transmission Date: 20050727
  Serious: Yes (Death)
  Sender: FDA-Public Use
  Company Number: None

PATIENT
  Age: 69 Year
  Sex: Male
  Weight: 91.9 kg

DRUGS (12)
  1. GOSERELIN ACETATE [Suspect]
     Dosage: 28.8 MG
     Dates: start: 20040604, end: 20050105
  2. ASPIRIN [Concomitant]
  3. ALBUTEROL [Concomitant]
  4. ATROPHINE [Concomitant]
  5. LIPITOR [Concomitant]
  6. LOVENOX [Concomitant]
  7. MARCODANTIN [Concomitant]
  8. NITRO-BID [Concomitant]
  9. REGLULAR INSULIN [Concomitant]
  10. RESUSCIATATIVE MEDICATION UNKNOWN [Concomitant]
  11. LASIX [Concomitant]
  12. ZOLADEX [Suspect]

REACTIONS (5)
  - CARDIO-RESPIRATORY ARREST [None]
  - CORONARY ARTERY DISSECTION [None]
  - HYPOTENSION [None]
  - PROCEDURAL COMPLICATION [None]
  - VENTRICULAR FIBRILLATION [None]
